FAERS Safety Report 20964816 (Version 3)
Quarter: 2022Q4

REPORT INFORMATION
  Report Type: Spontaneous
  Country: JP (occurrence: JP)
  Receive Date: 20220616
  Receipt Date: 20221109
  Transmission Date: 20230113
  Serious: Yes (Other)
  Sender: FDA-Public Use
  Company Number: JP-AMGEN-JPNSP2022102662

PATIENT
  Age: 74 Year
  Sex: Female

DRUGS (1)
  1. BLINCYTO [Suspect]
     Active Substance: BLINATUMOMAB
     Indication: B precursor type acute leukaemia
     Dosage: 28 MICROGRAM, QD
     Route: 041
     Dates: start: 20220411, end: 20220510

REACTIONS (1)
  - Acute lymphocytic leukaemia recurrent [Recovering/Resolving]

NARRATIVE: CASE EVENT DATE: 20220608
